FAERS Safety Report 13760288 (Version 1)
Quarter: 2017Q3

REPORT INFORMATION
  Report Type: Spontaneous
  Country: US (occurrence: US)
  Receive Date: 20170717
  Receipt Date: 20170717
  Transmission Date: 20171127
  Serious: No
  Sender: FDA-Public Use
  Company Number: US-BAUSCH-BL-2017-009106

PATIENT
  Sex: Male

DRUGS (2)
  1. NEOMYCIN [Suspect]
     Active Substance: NEOMYCIN
     Indication: IRRITABLE BOWEL SYNDROME
     Route: 048
     Dates: start: 201703, end: 201703
  2. XIFAXAN [Suspect]
     Active Substance: RIFAXIMIN
     Indication: IRRITABLE BOWEL SYNDROME
     Route: 048
     Dates: start: 201703, end: 2017

REACTIONS (4)
  - Sleep disorder [Recovered/Resolved]
  - Abdominal pain upper [Recovered/Resolved]
  - Malaise [Recovered/Resolved]
  - Fatigue [Recovered/Resolved]

NARRATIVE: CASE EVENT DATE: 2017
